FAERS Safety Report 24754238 (Version 1)
Quarter: 2024Q4

REPORT INFORMATION
  Report Type: Spontaneous
  Country: FR (occurrence: FR)
  Receive Date: 20241219
  Receipt Date: 20241219
  Transmission Date: 20250114
  Serious: Yes (Other)
  Sender: NOVARTIS
  Company Number: FR-002147023-NVSC2024FR240381

PATIENT

DRUGS (1)
  1. MIDOSTAURIN [Suspect]
     Active Substance: MIDOSTAURIN
     Indication: Mantle cell lymphoma
     Dosage: 100 MG, BID (CONTINUOUS 28-DAY CYCLES UNTIL PROGRESSION OR UNACCEPTABLE TOXICITY)
     Route: 048

REACTIONS (3)
  - Mantle cell lymphoma [Unknown]
  - Malignant neoplasm progression [Unknown]
  - Drug ineffective for unapproved indication [Unknown]
